FAERS Safety Report 5914707-8 (Version None)
Quarter: 2008Q4

REPORT INFORMATION
  Report Type: 
  Country: None (occurrence: None)
  Receive Date: 20081010
  Receipt Date: 20081002
  Transmission Date: 20090506
  Serious: Yes (Other)
  Sender: FDA-Public Use
  Company Number: GR-JNJFOC-20080906384

PATIENT
  Age: 65 Year
  Sex: Male

DRUGS (2)
  1. RISPERDAL CONSTA [Suspect]
     Indication: ALCOHOLIC PSYCHOSIS
     Route: 030
  2. ANTIPSYCHOTICS [Concomitant]

REACTIONS (1)
  - ALCOHOLIC PSYCHOSIS [None]
